FAERS Safety Report 10203542 (Version 1)
Quarter: 2014Q2

REPORT INFORMATION
  Report Type: Spontaneous
  Country: DE (occurrence: None)
  Receive Date: 20140523
  Receipt Date: 20140523
  Transmission Date: 20141212
  Serious: Yes (Hospitalization)
  Sender: FDA-Public Use
  Company Number: AMLO20140016

PATIENT
  Age: 70 Year
  Sex: Female

DRUGS (1)
  1. AMLODIPINE BESYLATE TABLETS (AMLODIPINE BESILATE) [Suspect]
     Indication: HYPERTENSION
     Route: 048

REACTIONS (18)
  - Dysphagia [None]
  - Dysphonia [None]
  - Neck pain [None]
  - Myalgia [None]
  - Dyspnoea [None]
  - Dystonia [None]
  - Dysphonia [None]
  - Dysarthria [None]
  - Bruxism [None]
  - Muscle hypertrophy [None]
  - Dysphagia [None]
  - Blepharospasm [None]
  - Torticollis [None]
  - Depressed mood [None]
  - Sleep disorder [None]
  - Decreased appetite [None]
  - Anxiety [None]
  - Dystonia [None]
